FAERS Safety Report 8859893 (Version 1)
Quarter: 2012Q4

REPORT INFORMATION
  Report Type: 
  Country: BR (occurrence: BR)
  Receive Date: 20121025
  Receipt Date: 20121025
  Transmission Date: 20130627
  Serious: Yes (Hospitalization)
  Sender: FDA-Public Use
  Company Number: PHHY2012BR095268

PATIENT
  Sex: Female

DRUGS (5)
  1. GALVUS [Suspect]
     Indication: DIABETES MELLITUS
     Dosage: 50 mg, BID
  2. ATENOLOL [Suspect]
     Indication: CARDIAC DISORDER
     Dosage: 25 mg, BID
  3. LANTUS [Suspect]
     Indication: DIABETES MELLITUS
     Dosage: 1 DF, QD
  4. APIDRA [Suspect]
     Indication: DIABETES MELLITUS
  5. MICARDIS [Suspect]
     Indication: CARDIAC DISORDER
     Dosage: 1 DF, QD

REACTIONS (1)
  - Cardiac disorder [Recovering/Resolving]
